FAERS Safety Report 16876205 (Version 5)
Quarter: 2020Q1

REPORT INFORMATION
  Report Type: Spontaneous
  Country: US (occurrence: US)
  Receive Date: 20191002
  Receipt Date: 20200220
  Transmission Date: 20200409
  Serious: No
  Sender: FDA-Public Use
  Company Number: US-GW PHARMA-201909USGW3290

PATIENT

DRUGS (24)
  1. EPIDIOLEX [Suspect]
     Active Substance: CANNABIDIOL
     Indication: STATUS EPILEPTICUS
     Dosage: 7.56 MG/KG/DAY, 180 MILLIGRAM, BID
     Route: 048
     Dates: start: 20190529, end: 2019
  2. EPIDIOLEX [Suspect]
     Active Substance: CANNABIDIOL
     Dosage: 3.6 MG/KG/DAY, 171.43 MILLIGRAM, QD
     Route: 048
     Dates: start: 2019
  3. LAMOTRIGINE. [Suspect]
     Active Substance: LAMOTRIGINE
     Indication: PRODUCT USED FOR UNKNOWN INDICATION
     Dosage: 500 MILLIGRAM, QD (200 MILLIGRAM AM AND 300 MILLIGRAM PM) (TABLET)
     Route: 065
  4. ALLEGRA [Concomitant]
     Active Substance: FEXOFENADINE HYDROCHLORIDE
     Indication: HYPERSENSITIVITY
     Dosage: 180 MG DAILY AS NEEDED
     Route: 065
  5. OSCAL D [CALCIUM CARBONATE;VITAMIN D NOS] [Concomitant]
     Indication: PRODUCT USED FOR UNKNOWN INDICATION
     Dosage: 1 DOSAGE FORM QD, (500 MG CALCIUM SUPPLEMENT WITH 600 IU VITAMIN D3) (AM)
     Route: 065
  6. ALBUTEROL SULFATE. [Concomitant]
     Active Substance: ALBUTEROL SULFATE
     Indication: RESPIRATORY DISORDER
     Dosage: 1 RESPULE 2.5 MG/3ML/.083% W/VIAL
     Route: 055
  7. PULMICORT TURBUHALER [Concomitant]
     Active Substance: BUDESONIDE
     Indication: RESPIRATORY DISORDER
     Dosage: 0.5 MILLIGRAM, Q12H
     Route: 065
  8. CALCIUM CARBONATE AND VITAMIN D [Concomitant]
     Active Substance: CALCIUM CARBONATE\VITAMIN D
     Indication: PRODUCT USED FOR UNKNOWN INDICATION
     Dosage: 1 DOSAGE FORM QD, (500 MG CALCIUM SUPPLEMENT WITH 400 IU VITAMIN D3), (PM)
     Route: 065
  9. MUCINEX [Concomitant]
     Active Substance: GUAIFENESIN
     Indication: PULMONARY CONGESTION
     Dosage: 600 MG GUAIFENESIN EVERY 12 HOURS AS NEEDED
     Route: 065
  10. IBUPROFEN. [Concomitant]
     Active Substance: IBUPROFEN
     Indication: DISCOMFORT
  11. EPIDIOLEX [Suspect]
     Active Substance: CANNABIDIOL
     Indication: LENNOX-GASTAUT SYNDROME
     Dosage: 5.46 MG/KG/ DAY, 130 MILLIGRAM, BID
     Dates: start: 201905, end: 20190528
  12. ZONEGRAN [Concomitant]
     Active Substance: ZONISAMIDE
     Indication: PRODUCT USED FOR UNKNOWN INDICATION
     Dosage: 200 MILLIGRAM, BID (AM AND PM)
     Route: 065
  13. ZANTAC [Concomitant]
     Active Substance: RANITIDINE HYDROCHLORIDE
     Indication: PRODUCT USED FOR UNKNOWN INDICATION
     Dosage: 150 MILLIGRAM, QD (PM)
     Route: 065
  14. OXYGEN. [Concomitant]
     Active Substance: OXYGEN
     Indication: SUPPLEMENTATION THERAPY
     Dosage: AS NEEDED WHEN O2 LEVEL FALLS BELOW 94%
     Route: 065
  15. PEPCID [Concomitant]
     Active Substance: FAMOTIDINE
     Indication: PRODUCT USED FOR UNKNOWN INDICATION
     Dosage: 20 MILLIGRAM, QD (PM)
     Route: 065
  16. KLONOPIN [Concomitant]
     Active Substance: CLONAZEPAM
     Indication: PRODUCT USED FOR UNKNOWN INDICATION
     Dosage: 3 MILLIGRAM, BID (AM AND PM)
     Route: 065
  17. BISACODYL. [Concomitant]
     Active Substance: BISACODYL
     Indication: BOWEL MOVEMENT IRREGULARITY
     Dosage: 10 MILLIGRAM, QOD
     Route: 065
  18. ATROVENT [Concomitant]
     Active Substance: IPRATROPIUM BROMIDE
     Indication: RESPIRATORY DISORDER
     Dosage: .5 MG/IPRATROPIUM BROMIDE 4 X DAILY OR AS NEEDED EVERY 2 HOURS WHEN SICK; FORMULATION RESPULE
     Route: 055
  19. EPIDIOLEX [Suspect]
     Active Substance: CANNABIDIOL
     Dosage: DOSE DECREASED
     Route: 048
     Dates: start: 2020
  20. BANZEL [Concomitant]
     Active Substance: RUFINAMIDE
     Indication: PRODUCT USED FOR UNKNOWN INDICATION
     Dosage: 1600 MILLIGRAM, BID (AM AND PM)
     Route: 065
  21. SCOPOLAMINE [HYOSCINE BUTYLBROMIDE] [Concomitant]
     Active Substance: BUTYLSCOPOLAMINE
     Indication: RESPIRATORY DISORDER
     Dosage: 1.5 MILLIGRAM, QOD
     Route: 062
  22. ALIGN [Concomitant]
     Active Substance: BIFIDOBACTERIUM LONGUM SUBSP. INFANTIS
     Indication: SUPPLEMENTATION THERAPY
     Dosage: 1 DOSAGE FORM, QD (AM)
     Route: 065
  23. POLY-VI-SOL WITH IRON [Concomitant]
     Active Substance: IRON\VITAMINS
     Indication: PRODUCT USED FOR UNKNOWN INDICATION
     Dosage: 1 MILLILITER, BID (AM AND PM)
     Route: 065
  24. IBUPROFEN. [Concomitant]
     Active Substance: IBUPROFEN
     Indication: PYREXIA
     Dosage: 2 TABLETS (200 MG) AS NEEDED
     Route: 065

REACTIONS (12)
  - Retching [Unknown]
  - Retching [Unknown]
  - Oxygen saturation decreased [Unknown]
  - Pollakiuria [Unknown]
  - Hyperactive pharyngeal reflex [Unknown]
  - Seizure [Unknown]
  - Abdominal discomfort [Not Recovered/Not Resolved]
  - Seizure [Unknown]
  - Retching [Not Recovered/Not Resolved]
  - Seizure [Unknown]
  - Abdominal pain upper [Not Recovered/Not Resolved]
  - Product use issue [Not Recovered/Not Resolved]

NARRATIVE: CASE EVENT DATE: 2019
